FAERS Safety Report 16485361 (Version 3)
Quarter: 2020Q4

REPORT INFORMATION
  Report Type: Spontaneous
  Country: US (occurrence: US)
  Receive Date: 20190627
  Receipt Date: 20201027
  Transmission Date: 20210113
  Serious: Yes (Hospitalization, Other)
  Sender: FDA-Public Use
  Company Number: US-SA-2019SA174696

PATIENT

DRUGS (3)
  1. DUPIXENT [Suspect]
     Active Substance: DUPILUMAB
     Dosage: UNK
     Dates: start: 201901, end: 20190501
  2. PREDNISONE. [Concomitant]
     Active Substance: PREDNISONE
     Indication: DERMATITIS ATOPIC
  3. DUPIXENT [Suspect]
     Active Substance: DUPILUMAB
     Dosage: 300 MG, QOW
     Route: 058
     Dates: start: 20181017, end: 201812

REACTIONS (10)
  - Angioimmunoblastic T-cell lymphoma [Unknown]
  - Pleural effusion [Unknown]
  - Weight decreased [Unknown]
  - Viral infection [Unknown]
  - Lymphadenectomy [Unknown]
  - Pulmonary oedema [Unknown]
  - Dermatitis atopic [Unknown]
  - Respiratory symptom [Unknown]
  - Epistaxis [Unknown]
  - Influenza like illness [Unknown]

NARRATIVE: CASE EVENT DATE: 201903
